FAERS Safety Report 8002684-8 (Version None)
Quarter: 2011Q4

REPORT INFORMATION
  Report Type: 
  Country: None (occurrence: None)
  Receive Date: 20111220
  Receipt Date: 20111205
  Transmission Date: 20120403
  Serious: Yes (Life-Threatening, Other)
  Sender: FDA-Public Use
  Company Number: US-2011-10912

PATIENT
  Age: 26 Year
  Sex: Male

DRUGS (8)
  1. ZOVIRAX [Concomitant]
  2. TAZOCILLINE (PIPERACILLIN SODIUM, TAZOBACTAM SODIUM) [Concomitant]
  3. BUSULFEX [Suspect]
     Indication: ACUTE MYELOID LEUKAEMIA
     Dosage: 3.2 MG MILLIGRAM(S), INTRAVENOUS,3.9 MG MILLIGRAM(S), QD, INTRAVENOUS
     Route: 042
     Dates: start: 20111115
  4. CYCLOPHOSPHAMIDE [Suspect]
     Indication: ACUTE MYELOID LEUKAEMIA
     Dosage: 60 MG MILLIGRAM(S), INTRAVENOUS
     Route: 042
     Dates: start: 20111121, end: 20111122
  5. CYCLOSPORINE [Concomitant]
  6. VFEND [Concomitant]
  7. FORTUMSET (CEFTAZIDIME) [Concomitant]
  8. AMIKIN [Concomitant]

REACTIONS (2)
  - CLOSTRIDIUM COLITIS [None]
  - SEPSIS [None]
